FAERS Safety Report 9154438 (Version 1)
Quarter: 2013Q1

REPORT INFORMATION
  Report Type: Spontaneous
  Country: IT (occurrence: None)
  Receive Date: 20130207
  Receipt Date: 20130207
  Transmission Date: 20140127
  Serious: Yes (Other)
  Sender: FDA-Public Use
  Company Number: 2013-01762

PATIENT
  Sex: Male

DRUGS (6)
  1. SOTALOL HYDROCHLORIDE [Suspect]
     Dosage: 1 DOSAGE UNIT DAILY, ORAL?
     Route: 048
     Dates: start: 20111210, end: 20121209
  2. TAMSULOSIN HYDROCHLORIDE [Suspect]
     Dosage: 1 DOSAGE UNIT DAILY, ORAL
     Route: 048
     Dates: start: 20111210, end: 20121209
  3. ISOSORBIDE MONONITRATE [Suspect]
     Route: 048
     Dates: start: 20111210, end: 20121209
  4. LANOXIN (DIGOXIN) [Concomitant]
  5. ALLOPURINOL [Concomitant]
  6. METFORMIN HYDROCHLORIDE (METFORMIN HYDROCHLORIDE) [Concomitant]

REACTIONS (1)
  - Presyncope [None]
